FAERS Safety Report 10054974 (Version 1)
Quarter: 2014Q2

REPORT INFORMATION
  Report Type: Report from Study
  Country: JP (occurrence: JP)
  Receive Date: 20140402
  Receipt Date: 20140402
  Transmission Date: 20141212
  Serious: Yes (Death)
  Sender: FDA-Public Use
  Company Number: JP-ALLERGAN-1406543US

PATIENT
  Age: 80 Year
  Sex: Female

DRUGS (5)
  1. BRIMONIDINE 1MG/ML SOL (9541X) [Suspect]
     Indication: OPEN ANGLE GLAUCOMA
     Dosage: ONE DROP TWICE A DAY TO BOTH EYES
     Route: 047
     Dates: start: 20130202, end: 20131107
  2. XALATAN [Concomitant]
     Dosage: UNK
     Route: 047
  3. RECALBON [Concomitant]
     Dosage: UNK
     Route: 048
  4. PREDONINE [Concomitant]
     Dosage: UNK
     Route: 048
  5. ALDACTONE [Concomitant]
     Dosage: UNK
     Route: 048

REACTIONS (2)
  - Pneumonia aspiration [Fatal]
  - Blepharitis [Fatal]
